FAERS Safety Report 12268267 (Version 5)
Quarter: 2016Q2

REPORT INFORMATION
  Report Type: Spontaneous
  Country: IL (occurrence: IL)
  Receive Date: 20160414
  Receipt Date: 20160613
  Transmission Date: 20160815
  Serious: Yes (Hospitalization)
  Sender: FDA-Public Use
  Company Number: IL-SA-2016SA073243

PATIENT
  Age: 71 Year
  Sex: Male
  Weight: 42.5 kg

DRUGS (9)
  1. CARDILOC [Concomitant]
     Active Substance: BISOPROLOL FUMARATE
     Dates: start: 201105
  2. METFORMIN [Concomitant]
     Active Substance: METFORMIN HYDROCHLORIDE
     Dates: start: 20150228
  3. OMEPRADEX [Concomitant]
     Active Substance: OMEPRAZOLE
     Dates: start: 20150228
  4. FUSID [Concomitant]
     Active Substance: FUROSEMIDE
     Dates: start: 20150225
  5. TRITACE [Concomitant]
     Active Substance: RAMIPRIL
     Dates: start: 2014
  6. ASPIRIN. [Suspect]
     Active Substance: ASPIRIN
     Route: 065
     Dates: start: 201001
  7. ROSUVASTATIN. [Concomitant]
     Active Substance: ROSUVASTATIN
     Dates: start: 20150401
  8. PLAVIX [Suspect]
     Active Substance: CLOPIDOGREL BISULFATE
     Route: 065
     Dates: start: 20150228
  9. ALDACTONE [Concomitant]
     Active Substance: SPIRONOLACTONE
     Dates: start: 20150225

REACTIONS (1)
  - Auricular haematoma [Recovered/Resolved]

NARRATIVE: CASE EVENT DATE: 20160114
